FAERS Safety Report 6006316-X (Version None)
Quarter: 2008Q4

REPORT INFORMATION
  Report Type: 
  Country: None (occurrence: None)
  Receive Date: 20081217
  Receipt Date: 20081211
  Transmission Date: 20090506
  Serious: Yes (Hospitalization)
  Sender: FDA-Public Use
  Company Number: A0736255A

PATIENT
  Age: 80 Year
  Sex: Male

DRUGS (8)
  1. ADVAIR DISKUS 250/50 [Suspect]
     Route: 055
     Dates: start: 20080401
  2. LEVOXYL [Concomitant]
  3. FLOMAX [Concomitant]
  4. SIMVASTATIN [Concomitant]
  5. OMEPRAZOLE [Concomitant]
  6. SPIRIVA [Concomitant]
  7. WARFARIN SODIUM [Concomitant]
  8. ALBUTEROL [Concomitant]

REACTIONS (5)
  - EMPHYSEMA [None]
  - LUNG DISORDER [None]
  - PLATELET COUNT DECREASED [None]
  - PNEUMONIA [None]
  - PYREXIA [None]
